FAERS Safety Report 25343168 (Version 1)
Quarter: 2025Q2

REPORT INFORMATION
  Report Type: Spontaneous
  Country: US (occurrence: US)
  Receive Date: 20250521
  Receipt Date: 20250521
  Transmission Date: 20250717
  Serious: Yes (Hospitalization)
  Sender: GLAXOSMITHKLINE
  Company Number: US-GSK-US2025061400

PATIENT

DRUGS (1)
  1. TRELEGY ELLIPTA [Suspect]
     Active Substance: FLUTICASONE FUROATE\UMECLIDINIUM BROMIDE\VILANTEROL TRIFENATATE
     Indication: Chronic obstructive pulmonary disease
     Dates: start: 202411

REACTIONS (3)
  - Influenza [Recovering/Resolving]
  - Urinary tract infection [Recovered/Resolved]
  - Streptococcal infection [Recovered/Resolved]

NARRATIVE: CASE EVENT DATE: 20250510
